FAERS Safety Report 5970873-X (Version None)
Quarter: 2008Q4

REPORT INFORMATION
  Report Type: 
  Country: None (occurrence: None)
  Receive Date: 20081128
  Receipt Date: 20081114
  Transmission Date: 20090506
  Serious: Yes (Other)
  Sender: FDA-Public Use
  Company Number: PHHY2008SG28213

PATIENT
  Age: 72 Year

DRUGS (2)
  1. CLOZARIL [Suspect]
     Indication: SCHIZOPHRENIA
     Dosage: 100MG
     Route: 048
  2. CLOZARIL [Suspect]
     Dosage: 50 MG ON
     Route: 048

REACTIONS (2)
  - NASAL NEOPLASM [None]
  - WHITE BLOOD CELL COUNT DECREASED [None]
